FAERS Safety Report 16261335 (Version 7)
Quarter: 2019Q3

REPORT INFORMATION
  Report Type: Spontaneous
  Country: US (occurrence: US)
  Receive Date: 20190501
  Receipt Date: 20190716
  Transmission Date: 20191004
  Serious: Yes (Other)
  Sender: FDA-Public Use
  Company Number: US-PFIZER INC-2019181203

PATIENT
  Age: 80 Year
  Sex: Female
  Weight: 72.57 kg

DRUGS (4)
  1. DILANTIN [Suspect]
     Active Substance: PHENYTOIN
     Indication: SEIZURE
     Dosage: 400 MG, 1X/DAY
     Route: 048
     Dates: start: 196905, end: 1987
  2. DILANTIN [Suspect]
     Active Substance: PHENYTOIN
     Indication: MIGRAINE
     Dosage: 400 MG, 1X/DAY
     Route: 048
  3. PHENOBARBITAL. [Concomitant]
     Active Substance: PHENOBARBITAL
     Indication: SEIZURE
     Dosage: 1 DF, 3X/DAY [33.2/0.5MG TABLET]
     Route: 048
  4. PHENOBARBITAL. [Concomitant]
     Active Substance: PHENOBARBITAL
     Indication: MIGRAINE

REACTIONS (5)
  - Panic reaction [Unknown]
  - Intentional product misuse [Unknown]
  - Diabetes mellitus [Recovered/Resolved]
  - Drug ineffective [Not Recovered/Not Resolved]
  - Chronic obstructive pulmonary disease [Recovering/Resolving]

NARRATIVE: CASE EVENT DATE: 2014
